FAERS Safety Report 9559252 (Version 2)
Quarter: 2013Q4

REPORT INFORMATION
  Report Type: Spontaneous
  Country: ES (occurrence: ES)
  Receive Date: 20130927
  Receipt Date: 20131018
  Transmission Date: 20140711
  Serious: Yes (Hospitalization)
  Sender: FDA-Public Use
  Company Number: PHHY2013ES107075

PATIENT
  Age: 48 Year
  Sex: Female

DRUGS (2)
  1. AFINITOR [Suspect]
     Indication: BREAST CANCER METASTATIC
     Dosage: 10 MG, UNK
     Route: 048
     Dates: start: 20130412, end: 20130419
  2. EXEMESTANE [Concomitant]
     Indication: BREAST CANCER METASTATIC
     Dates: start: 201306

REACTIONS (2)
  - Coronary artery dissection [Recovering/Resolving]
  - Acute myocardial infarction [Recovering/Resolving]
